FAERS Safety Report 9155663 (Version 1)
Quarter: 2013Q1

REPORT INFORMATION
  Report Type: Spontaneous
  Country: KZ (occurrence: KZ)
  Receive Date: 20130311
  Receipt Date: 20130311
  Transmission Date: 20140127
  Serious: Yes (Other)
  Sender: FDA-Public Use
  Company Number: PHHY2013KZ022177

PATIENT
  Age: 37 Year
  Sex: Female
  Weight: 100 kg

DRUGS (1)
  1. AMOXICLAV [Suspect]
     Indication: OSTEITIS
     Dosage: 625 MG, TID
     Route: 048
     Dates: start: 20130114, end: 20130114

REACTIONS (1)
  - Hepatic pain [Recovered/Resolved]
